FAERS Safety Report 11803498 (Version 1)
Quarter: 2015Q4

REPORT INFORMATION
  Report Type: Spontaneous
  Country: US (occurrence: None)
  Receive Date: 20151203
  Receipt Date: 20151203
  Transmission Date: 20160305
  Serious: No
  Sender: FDA-Public Use
  Company Number: None

PATIENT
  Age: 61 Year
  Sex: Female

DRUGS (5)
  1. OXYCODONE [Concomitant]
     Active Substance: OXYCODONE
  2. METHOCARBAM [Concomitant]
  3. EXEMESTANE. [Concomitant]
     Active Substance: EXEMESTANE
  4. AFINITOR [Suspect]
     Active Substance: EVEROLIMUS
     Indication: BREAST CANCER
     Route: 048
     Dates: start: 20151121
  5. EYDROMORPHON [Concomitant]

REACTIONS (3)
  - Headache [None]
  - Nausea [None]
  - Influenza like illness [None]
